FAERS Safety Report 7824301-X (Version None)
Quarter: 2011Q4

REPORT INFORMATION
  Report Type: 
  Country: None (occurrence: None)
  Receive Date: 20111014
  Receipt Date: 20111005
  Transmission Date: 20120403
  Serious: Yes (Hospitalization)
  Sender: FDA-Public Use
  Company Number: DSM-2011-00945

PATIENT
  Age: 78 Year
  Sex: Male

DRUGS (1)
  1. OLMESARTAN MEDOXOMIL/AMLODIPINE BESYLATE/HYDROCHLOROTHIAZIDE [Suspect]
     Indication: PRODUCT USED FOR UNKNOWN INDICATION
     Dosage: 40/10/25 MG, ORAL
     Route: 048
     Dates: start: 20110328, end: 20110509

REACTIONS (3)
  - CARDIOVASCULAR INSUFFICIENCY [None]
  - OEDEMA PERIPHERAL [None]
  - ERYTHEMA [None]
